FAERS Safety Report 18780602 (Version 1)
Quarter: 2021Q1

REPORT INFORMATION
  Report Type: Spontaneous
  Country: US (occurrence: US)
  Receive Date: 20210122
  Receipt Date: 20210122
  Transmission Date: 20210419
  Serious: Yes (Hospitalization)
  Sender: FDA-Public Use
  Company Number: None

PATIENT
  Sex: Male

DRUGS (1)
  1. AZITHROMYCIN 250MG LUPIN PHARMACEUTICALS [Suspect]
     Active Substance: AZITHROMYCIN
     Indication: PSEUDOMONAS INFECTION
     Route: 048
     Dates: start: 201904

REACTIONS (1)
  - Hospitalisation [None]
